FAERS Safety Report 18793228 (Version 1)
Quarter: 2021Q1

REPORT INFORMATION
  Report Type: Spontaneous
  Country: US (occurrence: US)
  Receive Date: 20210125
  Receipt Date: 20210125
  Transmission Date: 20210419
  Serious: Yes (Death)
  Sender: FDA-Public Use
  Company Number: None

PATIENT
  Age: 66 Year
  Sex: Male

DRUGS (2)
  1. TEMOZOLOMIDE 5MG [Suspect]
     Active Substance: TEMOZOLOMIDE
     Route: 048
     Dates: start: 202008, end: 202009
  2. TEMOZOLOMIDE 140MG [Suspect]
     Active Substance: TEMOZOLOMIDE
     Route: 048
     Dates: start: 202008, end: 202009

REACTIONS (2)
  - Disease progression [None]
  - Seizure [None]

NARRATIVE: CASE EVENT DATE: 20200915
